FAERS Safety Report 9891168 (Version 1)
Quarter: 2014Q1

REPORT INFORMATION
  Report Type: Spontaneous
  Country: US (occurrence: None)
  Receive Date: 20140211
  Receipt Date: 20140211
  Transmission Date: 20141002
  Serious: Yes (Other)
  Sender: FDA-Public Use
  Company Number: None

PATIENT
  Age: 26 Year
  Sex: Male
  Weight: 126.1 kg

DRUGS (1)
  1. SERTRALINE [Suspect]
     Indication: DEPRESSION
     Dosage: 1 PILL ONCE DAILY TAKEN BY MOUTH
     Dates: start: 20120707, end: 20140122

REACTIONS (7)
  - Weight increased [None]
  - Diarrhoea [None]
  - Irritability [None]
  - Middle insomnia [None]
  - Fatigue [None]
  - Libido decreased [None]
  - Feeling abnormal [None]
